FAERS Safety Report 15516585 (Version 1)
Quarter: 2018Q4

REPORT INFORMATION
  Report Type: Spontaneous
  Country: JP (occurrence: JP)
  Receive Date: 20181017
  Receipt Date: 20181017
  Transmission Date: 20190205
  Serious: Yes (Other)
  Sender: FDA-Public Use
  Company Number: JP-ALKEM LABORATORIES LIMITED-JP-ALKEM-2018-06074

PATIENT
  Age: 10 Year
  Sex: Male

DRUGS (2)
  1. LINEZOLID. [Suspect]
     Active Substance: LINEZOLID
     Indication: OTITIS MEDIA
     Dosage: 25 MG/KG, QD
     Route: 048
  2. CLARITHROMYCIN. [Concomitant]
     Active Substance: CLARITHROMYCIN
     Indication: OTITIS MEDIA
     Dosage: 15 MG/KG, QD
     Route: 048

REACTIONS (1)
  - Anaemia [Recovered/Resolved]
